FAERS Safety Report 4924509-7 (Version None)
Quarter: 2006Q1

REPORT INFORMATION
  Report Type: 
  Country: None (occurrence: None)
  Receive Date: 20060222
  Receipt Date: 20060210
  Transmission Date: 20060701
  Serious: Yes (Life-Threatening)
  Sender: FDA-Public Use
  Company Number: 2006022011

PATIENT
  Age: 50 Year
  Sex: Female

DRUGS (2)
  1. XALATAN [Suspect]
     Indication: GLAUCOMA
     Dosage: INTRAOCULAR
     Route: 031
     Dates: start: 20060111
  2. TIMOLOL MALEATE [Suspect]
     Indication: GLAUCOMA
     Dosage: INTRAOCULAR
     Route: 031
     Dates: start: 20060111

REACTIONS (1)
  - HYPERKALAEMIA [None]
